FAERS Safety Report 6399053-3 (Version None)
Quarter: 2009Q4

REPORT INFORMATION
  Report Type: 
  Country: None (occurrence: None)
  Receive Date: 20091013
  Receipt Date: 20091001
  Transmission Date: 20100525
  Serious: Yes (Hospitalization)
  Sender: FDA-Public Use
  Company Number: US-GENENTECH-291955

PATIENT
  Sex: Female

DRUGS (8)
  1. BEVACIZUMAB [Suspect]
     Indication: BREAST CANCER
     Dosage: 1010 MG, Q3W
     Route: 042
     Dates: start: 20090117
  2. TRASTUZUMAB [Suspect]
     Indication: BREAST CANCER
     Dosage: 403 MG, Q3W
     Route: 042
     Dates: start: 20090617
  3. CARBOPLATIN [Suspect]
     Indication: BREAST CANCER
     Dosage: 485 MG, Q3W
     Route: 042
     Dates: start: 20090617
  4. DOCETAXEL [Suspect]
     Indication: BREAST CANCER
     Dosage: 104 MG, Q3W
     Route: 042
     Dates: start: 20090617
  5. METHADONE HYDROCHLORIDE [Concomitant]
     Indication: DRUG USE FOR UNKNOWN INDICATION
     Dosage: UNK
     Dates: start: 20060101
  6. DEXAMETHASONE 0.5MG TAB [Concomitant]
     Indication: DRUG USE FOR UNKNOWN INDICATION
     Dosage: UNK
     Dates: start: 20090616
  7. LORTAB [Concomitant]
     Indication: DRUG USE FOR UNKNOWN INDICATION
     Dosage: UNK
     Dates: start: 20090501
  8. COMPAZINE [Concomitant]
     Indication: DRUG USE FOR UNKNOWN INDICATION
     Dosage: UNK

REACTIONS (1)
  - GASTROINTESTINAL HAEMORRHAGE [None]
